FAERS Safety Report 9150093 (Version 1)
Quarter: 2013Q1

REPORT INFORMATION
  Report Type: Spontaneous
  Country: US (occurrence: None)
  Receive Date: 20130228
  Receipt Date: 20130228
  Transmission Date: 20140127
  Serious: Yes (Hospitalization)
  Sender: FDA-Public Use
  Company Number: None

PATIENT
  Age: 64 Year
  Sex: Male
  Weight: 97.7 kg

DRUGS (1)
  1. MORPHINE [Suspect]
     Indication: CONSTIPATION
     Dosage: 1-2 TAB TID PO
     Route: 048
     Dates: start: 20100816, end: 20130122

REACTIONS (3)
  - Abdominal pain [None]
  - Mental status changes [None]
  - Constipation [None]
